FAERS Safety Report 5563150-2 (Version None)
Quarter: 2007Q4

REPORT INFORMATION
  Report Type: 
  Country: None (occurrence: None)
  Receive Date: 20071217
  Receipt Date: 20071204
  Transmission Date: 20080405
  Serious: Yes (Hospitalization, Other)
  Sender: FDA-Public Use
  Company Number: B0498236A

PATIENT
  Age: 88 Year
  Sex: Male
  Weight: 75 kg

DRUGS (8)
  1. AVANDAMET [Suspect]
     Dosage: 2MG TWICE PER DAY
     Route: 048
     Dates: start: 20070427, end: 20070701
  2. QUINAPRIL HCL AND HYDROCHLOROTHIAZIDE [Concomitant]
     Route: 065
  3. AMLOR [Concomitant]
     Dosage: 5MG PER DAY
     Route: 065
  4. STILNOX [Concomitant]
     Route: 065
  5. AMARYL [Concomitant]
     Dosage: 4MG PER DAY
     Route: 065
  6. CORTANCYL [Concomitant]
     Dosage: 10MG PER DAY
     Route: 065
  7. PERMIXON [Concomitant]
     Route: 065
  8. KESTIN [Concomitant]
     Dosage: 10MG PER DAY
     Route: 065

REACTIONS (12)
  - AORTIC ARTERIOSCLEROSIS [None]
  - ATRIAL TACHYCARDIA [None]
  - CARDIAC FAILURE [None]
  - CREPITATIONS [None]
  - DILATATION ATRIAL [None]
  - DYSPNOEA AT REST [None]
  - DYSPNOEA EXERTIONAL [None]
  - MITRAL VALVE INCOMPETENCE [None]
  - OEDEMA PERIPHERAL [None]
  - ORTHOPNOEA [None]
  - PROSTATITIS ESCHERICHIA COLI [None]
  - RENAL FAILURE [None]
